FAERS Safety Report 5024035-3 (Version None)
Quarter: 2006Q2

REPORT INFORMATION
  Report Type: 
  Country: None (occurrence: None)
  Receive Date: 20060426
  Receipt Date: 20060320
  Transmission Date: 20061013
  Serious: Yes (Other)
  Sender: FDA-Public Use
  Company Number: 2006038956

PATIENT
  Age: 51 Year
  Sex: Male
  Weight: 74.8435 kg

DRUGS (18)
  1. LYRICA [Suspect]
     Indication: MUSCLE SPASTICITY
     Dosage: 150 MG (75 MG, 2 IN 1 D), ORAL
     Route: 048
     Dates: start: 20060314
  2. HYOSCYAMINE (HYOSCYAMINE) [Concomitant]
  3. BENTYL [Concomitant]
  4. CHROMAGEN FORTE (ASCORBIC ACID, CYANOCOBALAMIN, FERROUS FUMARATE, FOLI [Concomitant]
  5. ULTRACET [Concomitant]
  6. CYMBALTA [Concomitant]
  7. NABUMETONE [Concomitant]
  8. FLOMAX [Concomitant]
  9. LIPITOR [Concomitant]
  10. PHENAZOPYRIDINE (PHENAZOPYRIDINE) [Concomitant]
  11. LISINOPRIL [Concomitant]
  12. BETHANECHOL (BETHANECHOL) [Concomitant]
  13. HYDROCHLOROTHIAZIDE/TRIAMTERENE (HYDROCHLOROTHIAZIDE, TRIAMTERENE) [Concomitant]
  14. ACIPHEX [Concomitant]
  15. PERCOGESIC (PARACETAMOL, PHENYLTOLOXAMINE CITRATE) [Concomitant]
  16. ADVIL [Concomitant]
  17. ALEVE [Concomitant]
  18. ACETAMINOPHEN [Concomitant]

REACTIONS (1)
  - VISION BLURRED [None]
